FAERS Safety Report 9231666 (Version 2)
Quarter: 2013Q3

REPORT INFORMATION
  Report Type: Report from Study
  Country: GB (occurrence: GB)
  Receive Date: 20130415
  Receipt Date: 20130823
  Transmission Date: 20140515
  Serious: Yes (Hospitalization)
  Sender: FDA-Public Use
  Company Number: GB-ABBOTT-13P-167-1073133-00

PATIENT
  Age: 8 Year
  Sex: Male
  Weight: 33.7 kg

DRUGS (4)
  1. HUMIRA [Suspect]
     Indication: UVEITIS
     Route: 058
     Dates: start: 20111215
  2. METHOTREXATE [Concomitant]
     Indication: UVEITIS
     Dosage: 15MG IN 0.3MLS
     Route: 058
  3. FOLIC ACID [Concomitant]
     Indication: VITAMIN SUPPLEMENTATION
     Route: 048
     Dates: start: 2009
  4. PREDNISOLONE [Concomitant]
     Indication: UVEITIS
     Dosage: 1 DROP EACH EYE
     Route: 047

REACTIONS (5)
  - Oropharyngeal pain [Recovered/Resolved]
  - Pyrexia [Recovered/Resolved]
  - Scarlet fever [Recovered/Resolved]
  - Pharyngitis streptococcal [Recovered/Resolved]
  - Rash [Not Recovered/Not Resolved]
